FAERS Safety Report 7353739-2 (Version None)
Quarter: 2011Q1

REPORT INFORMATION
  Report Type: 
  Country: None (occurrence: None)
  Receive Date: 20110315
  Receipt Date: 20110308
  Transmission Date: 20110831
  Serious: Yes (Other)
  Sender: FDA-Public Use
  Company Number: US-PFIZER INC-2011049418

PATIENT
  Age: 83 Year
  Sex: Female
  Weight: 55 kg

DRUGS (3)
  1. MIDAZOLAM [Concomitant]
     Dosage: 1 MG, UNK
     Route: 042
  2. BACITRACIN [Suspect]
     Dosage: 50000 UNITS /10 ML
  3. CEFAZOLIN [Concomitant]
     Dosage: 1 G, UNK
     Route: 042

REACTIONS (4)
  - ANAPHYLACTIC REACTION [None]
  - ANXIETY [None]
  - HYPOTENSION [None]
  - AGITATION [None]
